FAERS Safety Report 7959570-9 (Version None)
Quarter: 2011Q4

REPORT INFORMATION
  Report Type: 
  Country: None (occurrence: None)
  Receive Date: 20111206
  Receipt Date: 20111122
  Transmission Date: 20120403
  Serious: Yes (Other)
  Sender: FDA-Public Use
  Company Number: BE-JNJFOC-20111202143

PATIENT
  Age: 50 Year
  Sex: Female

DRUGS (8)
  1. PREDNISOLONE [Concomitant]
  2. OMEPRAZOLE [Concomitant]
  3. FOLIC ACID [Concomitant]
  4. ALENDRONATE SODIUM [Concomitant]
  5. SIMPONI [Suspect]
     Indication: RHEUMATOID ARTHRITIS
     Route: 058
     Dates: start: 20101101
  6. METHOTREXATE [Concomitant]
  7. STEOVIT D3 [Concomitant]
  8. VOLTAREN [Concomitant]

REACTIONS (2)
  - ULCERATIVE KERATITIS [None]
  - RHEUMATOID ARTHRITIS [None]
